FAERS Safety Report 19959593 (Version 1)
Quarter: 2021Q4

REPORT INFORMATION
  Report Type: Spontaneous
  Country: US (occurrence: US)
  Receive Date: 20211013
  Receipt Date: 20211013
  Transmission Date: 20220303
  Serious: Yes (Hospitalization)
  Sender: FDA-Public Use
  Company Number: None

PATIENT
  Age: 86 Year
  Sex: Male

DRUGS (1)
  1. TRELSTAR [Suspect]
     Active Substance: TRIPTORELIN PAMOATE
     Indication: Prostate cancer
     Dosage: ?          OTHER FREQUENCY:EVERY 3 MONTHS;
     Route: 030
     Dates: start: 201907

REACTIONS (2)
  - Rib fracture [None]
  - Leg amputation [None]

NARRATIVE: CASE EVENT DATE: 20210909
